FAERS Safety Report 9014837 (Version 1)
Quarter: 2013Q1

REPORT INFORMATION
  Report Type: Spontaneous
  Country: US (occurrence: None)
  Receive Date: 20130109
  Receipt Date: 20130109
  Transmission Date: 20140127
  Serious: Yes (Other)
  Sender: FDA-Public Use
  Company Number: None

PATIENT
  Age: 44 Year
  Sex: Female
  Weight: 56.7 kg

DRUGS (1)
  1. VIIBRYD [Suspect]
     Indication: GENERALISED ANXIETY DISORDER
     Dosage: 5MG DAILY PO
     Route: 048
     Dates: start: 20121214

REACTIONS (1)
  - Hypertensive crisis [None]
